FAERS Safety Report 16694749 (Version 1)
Quarter: 2019Q3

REPORT INFORMATION
  Report Type: Report from Study
  Country: US (occurrence: US)
  Receive Date: 20190812
  Receipt Date: 20190812
  Transmission Date: 20191004
  Serious: No
  Sender: FDA-Public Use
  Company Number: US-INCYTE CORPORATION-2019IN007018

PATIENT

DRUGS (1)
  1. JAKAFI [Suspect]
     Active Substance: RUXOLITINIB
     Indication: POLYCYTHAEMIA VERA
     Dosage: 10 MILLIGRAM, BID

REACTIONS (5)
  - Therapy non-responder [Unknown]
  - Haemoglobin increased [Unknown]
  - Splenomegaly [Unknown]
  - Haematocrit increased [Unknown]
  - White blood cell count increased [Unknown]
